FAERS Safety Report 17760502 (Version 2)
Quarter: 2020Q2

REPORT INFORMATION
  Report Type: Spontaneous
  Country: GR (occurrence: GR)
  Receive Date: 20200508
  Receipt Date: 20200515
  Transmission Date: 20200714
  Serious: Yes (Other)
  Sender: FDA-Public Use
  Company Number: NVSC2020GR125097

PATIENT
  Sex: Male

DRUGS (2)
  1. ENTRESTO [Suspect]
     Active Substance: SACUBITRIL\VALSARTAN
     Dosage: 50 MG (24/26MG)
     Route: 065
  2. ENTRESTO [Suspect]
     Active Substance: SACUBITRIL\VALSARTAN
     Indication: PRODUCT USED FOR UNKNOWN INDICATION
     Dosage: 100 MG (49/51MG)
     Route: 065

REACTIONS (9)
  - Urinary tract neoplasm [Unknown]
  - Metastases to bladder [Unknown]
  - Renal impairment [Unknown]
  - Blood creatinine increased [Unknown]
  - Fatigue [Unknown]
  - Renal cancer [Unknown]
  - Metastases to urinary tract [Unknown]
  - Bladder cancer [Unknown]
  - Ureteric cancer metastatic [Unknown]
